FAERS Safety Report 9111894 (Version 1)
Quarter: 2013Q1

REPORT INFORMATION
  Report Type: Spontaneous
  Country: US (occurrence: US)
  Receive Date: 20130219
  Receipt Date: 20130219
  Transmission Date: 20140127
  Serious: No
  Sender: FDA-Public Use
  Company Number: US-BRISTOL-MYERS SQUIBB COMPANY-16632010

PATIENT
  Age: 80 Year
  Sex: Female
  Weight: 5.38 kg

DRUGS (3)
  1. ORENCIA [Suspect]
     Indication: RHEUMATOID ARTHRITIS
     Dosage: LAST INF ON 19MAY12 TOTAL INCREASED INF 2.
     Route: 042
     Dates: start: 201107
  2. PREDNISONE [Suspect]
  3. METHOTREXATE [Concomitant]

REACTIONS (2)
  - Drug ineffective [Unknown]
  - Weight increased [Unknown]
